FAERS Safety Report 6444022-8 (Version None)
Quarter: 2009Q4

REPORT INFORMATION
  Report Type: 
  Country: None (occurrence: None)
  Receive Date: 20091116
  Receipt Date: 20091116
  Transmission Date: 20100525
  Serious: Yes (Hospitalization)
  Sender: FDA-Public Use
  Company Number: None

PATIENT
  Sex: Female
  Weight: 59.5 kg

DRUGS (8)
  1. ABRAXANE [Suspect]
     Indication: ADENOCARCINOMA PANCREAS
     Dosage: 416 MG D1 PER CYCLE 042
     Dates: start: 20090402, end: 20091102
  2. VANDETANIB [Suspect]
     Indication: ADENOCARCINOMA PANCREAS
     Dosage: 300 MG QD X 21 DAYS 047
     Dates: start: 20090402, end: 20091109
  3. SYNTHROID [Concomitant]
  4. CREON [Concomitant]
  5. TYLENOL (CAPLET) [Concomitant]
  6. LOVENOX [Concomitant]
  7. IMODIUM [Concomitant]
  8. REMERON [Concomitant]

REACTIONS (2)
  - DIARRHOEA [None]
  - INTESTINAL OBSTRUCTION [None]
